FAERS Safety Report 25281142 (Version 2)
Quarter: 2025Q2

REPORT INFORMATION
  Report Type: Spontaneous
  Country: NL (occurrence: NL)
  Receive Date: 20250508
  Receipt Date: 20250527
  Transmission Date: 20250717
  Serious: Yes (Hospitalization)
  Sender: CIPLA
  Company Number: NL-LRB-01055182

PATIENT

DRUGS (2)
  1. ALBUTEROL\IPRATROPIUM [Suspect]
     Active Substance: ALBUTEROL\IPRATROPIUM
     Indication: Asthma
     Dosage: 1 DOSAGE FORM, BID, NEBULISER LIQUID (STRENGTH: 1/0.2MG/ML / 0,5/2,5MG FL 2.5ML)
     Dates: start: 20250302, end: 20250331
  2. ALBUTEROL\IPRATROPIUM [Suspect]
     Active Substance: ALBUTEROL\IPRATROPIUM
     Indication: Chronic obstructive pulmonary disease

REACTIONS (3)
  - Dyspnoea [Recovering/Resolving]
  - Poor quality sleep [Recovering/Resolving]
  - Laryngeal dyskinesia [Recovering/Resolving]
